FAERS Safety Report 16883180 (Version 2)
Quarter: 2020Q3

REPORT INFORMATION
  Report Type: Spontaneous
  Country: US (occurrence: US)
  Receive Date: 20191004
  Receipt Date: 20200812
  Transmission Date: 20201102
  Serious: No
  Sender: FDA-Public Use
  Company Number: US-SA-2019SA268262

PATIENT

DRUGS (8)
  1. PROCHLORPERAZ [Concomitant]
     Active Substance: PROCHLORPERAZINE MALEATE
  2. LEVOTHYROXIN [Concomitant]
     Active Substance: LEVOTHYROXINE
  3. METHYLPHENIDAT [Concomitant]
     Active Substance: METHYLPHENIDATE
  4. DUPIXENT [Suspect]
     Active Substance: DUPILUMAB
     Indication: DERMATITIS CONTACT
     Dosage: 300 MG, QOW
     Route: 058
     Dates: start: 20180524
  5. DUPIXENT [Suspect]
     Active Substance: DUPILUMAB
     Indication: DERMATITIS
  6. ONDANSETRON [Concomitant]
     Active Substance: ONDANSETRON
  7. MONTELUKAST [Concomitant]
     Active Substance: MONTELUKAST SODIUM
  8. DIAZEPAM. [Concomitant]
     Active Substance: DIAZEPAM

REACTIONS (2)
  - Pruritus [Not Recovered/Not Resolved]
  - Coccydynia [Not Recovered/Not Resolved]
